FAERS Safety Report 14786701 (Version 1)
Quarter: 2018Q2

REPORT INFORMATION
  Report Type: Spontaneous
  Country: RU (occurrence: RU)
  Receive Date: 20180420
  Receipt Date: 20180420
  Transmission Date: 20180711
  Serious: Yes (Other)
  Sender: FDA-Public Use
  Company Number: RU-009507513-1804RUS006178

PATIENT
  Age: 27 Year
  Sex: Male

DRUGS (2)
  1. TEMODAL [Suspect]
     Active Substance: TEMOZOLOMIDE
     Indication: CEREBRAL DISORDER
     Dosage: UNK
     Dates: start: 20180125, end: 20180214
  2. DABRAFENIB MESYLATE (+) TRAMETINIB DIMETHYL SULFOXIDE [Concomitant]

REACTIONS (1)
  - Hepatic failure [Unknown]

NARRATIVE: CASE EVENT DATE: 2018
